FAERS Safety Report 5429743-8 (Version None)
Quarter: 2007Q3

REPORT INFORMATION
  Report Type: 
  Country: None (occurrence: None)
  Receive Date: 20070731
  Receipt Date: 20070412
  Transmission Date: 20080115
  Serious: No
  Sender: FDA-Public Use
  Company Number: US200704003037

PATIENT
  Sex: Female

DRUGS (3)
  1. BYETTA [Suspect]
     Indication: TYPE 2 DIABETES MELLITUS
     Dosage: 10 UG, SUBCUTANEOUS 10 UG, EACH MORNING, SUBCUTANEOUS 5 UG, EACH EVENING, SUBCUTANEOUS
     Route: 058
     Dates: start: 20060101, end: 20060101
  2. BYETTA [Suspect]
     Indication: TYPE 2 DIABETES MELLITUS
     Dosage: 10 UG, SUBCUTANEOUS 10 UG, EACH MORNING, SUBCUTANEOUS 5 UG, EACH EVENING, SUBCUTANEOUS
     Route: 058
     Dates: start: 20060101
  3. BYETTA [Suspect]
     Indication: TYPE 2 DIABETES MELLITUS
     Dosage: 10 UG, SUBCUTANEOUS 10 UG, EACH MORNING, SUBCUTANEOUS 5 UG, EACH EVENING, SUBCUTANEOUS
     Route: 058
     Dates: start: 20060101

REACTIONS (2)
  - INSOMNIA [None]
  - NAUSEA [None]
